FAERS Safety Report 5964378-X (Version None)
Quarter: 2008Q4

REPORT INFORMATION
  Report Type: 
  Country: None (occurrence: None)
  Receive Date: 20081124
  Receipt Date: 20080214
  Transmission Date: 20090506
  Serious: Yes (Other)
  Sender: FDA-Public Use
  Company Number: US-AMGEN-KDC215522

PATIENT
  Sex: Female

DRUGS (3)
  1. ENBREL [Suspect]
     Indication: PSORIATIC ARTHROPATHY
     Route: 058
     Dates: start: 20060101, end: 20080208
  2. METHOTREXATE [Concomitant]
     Dates: start: 20071017
  3. FOLIC ACID [Concomitant]
     Dates: start: 20071017

REACTIONS (2)
  - HYPERSENSITIVITY [None]
  - PHARYNGITIS STREPTOCOCCAL [None]
